FAERS Safety Report 8957592 (Version 2)
Quarter: 2013Q1

REPORT INFORMATION
  Report Type: Report from Study
  Country: MX (occurrence: MX)
  Receive Date: 20121210
  Receipt Date: 20130122
  Transmission Date: 20140127
  Serious: Yes (Other)
  Sender: FDA-Public Use
  Company Number: MX-INCYTE CORPORATION-2012IN002527

PATIENT
  Age: 61 Year
  Sex: Male

DRUGS (6)
  1. INC424 [Suspect]
     Indication: MYELOFIBROSIS
     Dosage: 20 MG, BID
     Route: 048
     Dates: start: 20121127, end: 20121127
  2. INC424 [Suspect]
     Dosage: 5 MG, BID
     Route: 048
     Dates: start: 20121201, end: 20130108
  3. INC424 [Suspect]
     Dosage: 20 MG, BID
     Route: 048
     Dates: start: 20130109
  4. UNSPECIFIED [Suspect]
     Dosage: UNKNOWN
  5. ALLOPURINOL [Concomitant]
     Dosage: UNK
     Dates: start: 20121127
  6. CANDESARTAN [Concomitant]
     Dosage: UNK
     Dates: start: 2007

REACTIONS (4)
  - Pruritus [Recovered/Resolved]
  - Concomitant disease progression [None]
  - Myelofibrosis [None]
  - Excessive dietary supplement intake [None]
